FAERS Safety Report 7121229-8 (Version None)
Quarter: 2010Q4

REPORT INFORMATION
  Report Type: 
  Country: None (occurrence: None)
  Receive Date: 20101124
  Receipt Date: 20101116
  Transmission Date: 20110411
  Serious: Yes (Life-Threatening, Hospitalization)
  Sender: FDA-Public Use
  Company Number: NL-JNJFOC-20101106373

PATIENT
  Age: 43 Year
  Sex: Male

DRUGS (2)
  1. REMICADE [Suspect]
     Indication: COLITIS ULCERATIVE
     Dosage: 4 INDUCTION INFUSIONS, 1 MAINTENANCE INFUSION; OVER 4 MONTHS
     Route: 042
  2. BECLOMETHASONE DIPROPIONATE [Concomitant]
     Indication: COLITIS ULCERATIVE
     Dosage: STABLE DOSE

REACTIONS (3)
  - INTENTIONAL SELF-INJURY [None]
  - MAJOR DEPRESSION [None]
  - SUICIDE ATTEMPT [None]
